FAERS Safety Report 21499219 (Version 1)
Quarter: 2022Q4

REPORT INFORMATION
  Report Type: Spontaneous
  Country: US (occurrence: None)
  Receive Date: 20221023
  Receipt Date: 20221023
  Transmission Date: 20230113
  Serious: Yes (Other)
  Sender: FDA-Public Use
  Company Number: None

PATIENT
  Age: 27 Year
  Sex: Female
  Weight: 94.5 kg

DRUGS (2)
  1. DEXTROAMPHET SACCHARAT, AMPHET ASPARTATE, DEXTROAMPHET SULFATE AND AMP [Suspect]
     Active Substance: AMPHETAMINE ASPARTATE\AMPHETAMINE SULFATE\DEXTROAMPHETAMINE SACCHARATE\DEXTROAMPHETAMINE SULFATE
     Dosage: FREQUENCY : TWICE A DAY;?
     Route: 048
  2. PROZAC [Concomitant]
     Active Substance: FLUOXETINE HYDROCHLORIDE

REACTIONS (6)
  - Irritability [None]
  - Depression [None]
  - Fatigue [None]
  - Feeling jittery [None]
  - Stress [None]
  - Product quality issue [None]

NARRATIVE: CASE EVENT DATE: 20221001
